FAERS Safety Report 4666016-5 (Version None)
Quarter: 2005Q2

REPORT INFORMATION
  Report Type: 
  Country: None (occurrence: None)
  Receive Date: 20050517
  Receipt Date: 20050413
  Transmission Date: 20051028
  Serious: No
  Sender: FDA-Public Use
  Company Number: S05-USA-01913-01

PATIENT
  Age: 77 Year
  Sex: Male

DRUGS (5)
  1. NAMENDA [Suspect]
     Indication: DEMENTIA
     Dosage: 15 MG QD; PO
     Route: 048
     Dates: start: 20050409, end: 20050410
  2. NAMENDA [Suspect]
     Indication: DEMENTIA
     Dosage: 5 MG BID; PO
     Route: 048
     Dates: start: 20050411
  3. NAMENDA [Suspect]
     Indication: DEMENTIA
     Dosage: 5 MG QD; PO
     Route: 048
     Dates: start: 20050326, end: 20050401
  4. NAMENDA [Suspect]
     Indication: DEMENTIA
     Dosage: 5 MG BID; PO
     Route: 048
     Dates: start: 20050402, end: 20050408
  5. ARICEPT [Concomitant]

REACTIONS (2)
  - NAUSEA [None]
  - VOMITING [None]
